FAERS Safety Report 9870899 (Version 1)
Quarter: 2014Q1

REPORT INFORMATION
  Report Type: Spontaneous
  Country: US (occurrence: None)
  Receive Date: 20140204
  Receipt Date: 20140204
  Transmission Date: 20141002
  Serious: No
  Sender: FDA-Public Use
  Company Number: None

PATIENT
  Sex: Female

DRUGS (1)
  1. SUTENT [Suspect]
     Indication: BLADDER CANCER
     Dosage: 25MG  4WK ON 2 WK OFF  PO
     Route: 048
     Dates: start: 20121128, end: 20140203

REACTIONS (1)
  - Red blood cell count decreased [None]
